FAERS Safety Report 21075380 (Version 1)
Quarter: 2022Q3

REPORT INFORMATION
  Report Type: Spontaneous
  Country: CN (occurrence: CN)
  Receive Date: 20220713
  Receipt Date: 20220713
  Transmission Date: 20221026
  Serious: Yes (Other)
  Sender: FDA-Public Use
  Company Number: None

PATIENT
  Age: 41 Year
  Sex: Female
  Weight: 56 kg

DRUGS (9)
  1. CYCLOPHOSPHAMIDE [Suspect]
     Active Substance: CYCLOPHOSPHAMIDE
     Indication: Breast cancer female
     Dosage: UNK, 1ST CYCLE OF CHEMOTHERAPY, CYCLOPHOSPHAMIDE DILUTED WITH SODIUM CHLORIDE
     Route: 042
  2. CYCLOPHOSPHAMIDE [Suspect]
     Active Substance: CYCLOPHOSPHAMIDE
     Dosage: 970 MG, QD, ONCE DAILY, 2ND CYCLE OF CHEMOTHERAPY, CYCLOPHOSPHAMIDE DILUTED WITH SODIUM CHLORIDE
     Route: 042
     Dates: start: 20220423, end: 20220423
  3. SODIUM CHLORIDE [Suspect]
     Active Substance: SODIUM CHLORIDE
     Indication: Medication dilution
     Dosage: UNK, QD,1ST CYCLE OF CHEMOTHERAPY CYCLOPHOSPHAMIDE DILUTED WITH SODIUM CHLORIDE
     Route: 042
  4. SODIUM CHLORIDE [Suspect]
     Active Substance: SODIUM CHLORIDE
     Dosage: UNK, 2ND CYCLE OF CHEMOTHERAPY, CYCLOPHOSPHAMIDE DILUTED WITH SODIUM CHLORIDE
     Route: 042
     Dates: start: 20220423, end: 20220423
  5. SODIUM CHLORIDE [Suspect]
     Active Substance: SODIUM CHLORIDE
     Dosage: UNK, 1ST CYCLE OF CHEMOTHERAPY, DOCETAXEL DILUTED WITH SODIUM CHLORIDE
     Route: 041
  6. SODIUM CHLORIDE [Suspect]
     Active Substance: SODIUM CHLORIDE
     Dosage: UNK, 2ND CYCLE OF CHEMOTHERAPY, DOCETAXEL DILUTED WITH SODIUM CHLORIDE
     Route: 041
     Dates: start: 20220423, end: 20220423
  7. DOCETAXEL [Suspect]
     Active Substance: DOCETAXEL
     Indication: Breast cancer female
     Dosage: UNK, 1ST CHEMOTHERAPY, DOCETAXEL DILUTED WITH SODIUM CHLORIDE
     Route: 041
  8. DOCETAXEL [Suspect]
     Active Substance: DOCETAXEL
     Dosage: 122 MG, QD,ONCE DAILY, 2ND CYCLE OF CHEMOTHERAPY, DOCETAXEL DILUTED WITH SODIUM CHLORIDE
     Route: 041
     Dates: start: 20220423, end: 20220423
  9. GRANULOCYTE COLONY-STIMULATING FACTOR NOS [Concomitant]
     Active Substance: GRANULOCYTE COLONY-STIMULATING FACTOR NOS
     Indication: Product used for unknown indication
     Dosage: 3 MG
     Route: 058
     Dates: start: 20220424

REACTIONS (2)
  - White blood cell count decreased [Recovering/Resolving]
  - Agranulocytosis [Recovering/Resolving]

NARRATIVE: CASE EVENT DATE: 20220429
